FAERS Safety Report 23829424 (Version 3)
Quarter: 2024Q3

REPORT INFORMATION
  Report Type: Spontaneous
  Country: PL (occurrence: PL)
  Receive Date: 20240508
  Receipt Date: 20240811
  Transmission Date: 20241017
  Serious: Yes (Hospitalization, Other)
  Sender: AMGEN
  Company Number: PL-AMGEN-POLSP2024087047

PATIENT
  Age: 16 Year
  Sex: Male

DRUGS (11)
  1. NPLATE [Suspect]
     Active Substance: ROMIPLOSTIM
     Indication: Immune thrombocytopenia
     Dosage: 250 MICROGRAM = 375 MICROGRAM
     Route: 065
     Dates: start: 20210322
  2. NPLATE [Suspect]
     Active Substance: ROMIPLOSTIM
     Dosage: UNK
     Route: 065
     Dates: start: 202107
  3. Immunoglobulin [Concomitant]
     Dosage: APPROX. 0.3 GRAM PER KILOGRAM BODY WEIGHT
  4. Immunoglobulin [Concomitant]
     Dosage: APPROX. 0.5 GRAM PER KILOGRAM BODY WEIGHT
  5. PREDNISONE [Concomitant]
     Active Substance: PREDNISONE
     Dosage: 30MG/24H
     Route: 065
     Dates: start: 201712
  6. PREDNISONE [Concomitant]
     Active Substance: PREDNISONE
     Dosage: 30MG/24H
     Route: 065
     Dates: start: 201811, end: 201902
  7. PREDNISONE [Concomitant]
     Active Substance: PREDNISONE
     Dosage: 30MG/24H
     Dates: start: 202109, end: 20220528
  8. HYDROCORTISONE [Concomitant]
     Active Substance: HYDROCORTISONE\HYDROCORTISONE ACETATE
     Dosage: 120MG/24H
     Route: 065
     Dates: start: 201712
  9. ELTROMBOPAG [Concomitant]
     Active Substance: ELTROMBOPAG
     Indication: Thrombocytopenia
     Dosage: UNK
     Route: 065
     Dates: start: 20201017
  10. ELTROMBOPAG [Concomitant]
     Active Substance: ELTROMBOPAG
     Dosage: 50 MILLIGRAM
     Dates: start: 20210125
  11. ELTROMBOPAG [Concomitant]
     Active Substance: ELTROMBOPAG
     Dosage: 75 MILLIGRAM
     Dates: start: 20210222

REACTIONS (8)
  - Neutropenia [Recovered/Resolved]
  - Leukopenia [Not Recovered/Not Resolved]
  - Haemorrhagic diathesis [Unknown]
  - COVID-19 [Unknown]
  - Autoimmune anaemia [Unknown]
  - Thrombocytopenia [Unknown]
  - Unevaluable event [Unknown]
  - Herpes zoster [Unknown]

NARRATIVE: CASE EVENT DATE: 20210101
